FAERS Safety Report 15124045 (Version 1)
Quarter: 2018Q3

REPORT INFORMATION
  Report Type: Spontaneous
  Country: IT (occurrence: IT)
  Receive Date: 20180710
  Receipt Date: 20180710
  Transmission Date: 20181010
  Serious: Yes (Hospitalization)
  Sender: FDA-Public Use
  Company Number: IT-TEVA-2018-IT-922454

PATIENT
  Age: 45 Year
  Sex: Male

DRUGS (2)
  1. DEPAKIN [Concomitant]
     Active Substance: VALPROATE SODIUM
     Route: 065
  2. RISPERIDONE. [Suspect]
     Active Substance: RISPERIDONE
     Indication: DELUSIONAL DISORDER, PERSECUTORY TYPE
     Dosage: 6 MILLIGRAM DAILY;
     Route: 048
     Dates: start: 20141201, end: 20151201

REACTIONS (1)
  - Convulsive threshold lowered [Unknown]

NARRATIVE: CASE EVENT DATE: 20151201
